FAERS Safety Report 7734007-3 (Version None)
Quarter: 2011Q3

REPORT INFORMATION
  Report Type: 
  Country: None (occurrence: None)
  Receive Date: 20110907
  Receipt Date: 20110826
  Transmission Date: 20111222
  Serious: Yes (Hospitalization)
  Sender: FDA-Public Use
  Company Number: CA-ELI_LILLY_AND_COMPANY-CA201108008142

PATIENT
  Age: 72 Year
  Sex: Female

DRUGS (22)
  1. ARANESP [Concomitant]
     Dosage: 30 UG, UNK
  2. LYRICA [Concomitant]
     Dosage: 150 MG, UNK
  3. LACTULOSE [Concomitant]
     Dosage: UNK, PRN
  4. ASPIRIN [Concomitant]
     Dosage: 80 MG, UNK
  5. NOVO-GESIC [Concomitant]
     Dosage: 500 MG, UNK
  6. ALBUTEROL [Concomitant]
     Dosage: UNK, PRN
  7. SEREVENT [Concomitant]
  8. SIMVASTATIN [Concomitant]
     Dosage: 80 MG, UNK
  9. DOCUSATE [Concomitant]
     Dosage: 100 MG, UNK
  10. VITAMIN D [Concomitant]
     Dosage: 10000 IU, UNK
  11. NITROGLYCERIN [Concomitant]
  12. HYDROMORPHONE HCL [Concomitant]
     Indication: PAIN
     Dosage: 2 MG, EVERY 4 HRS
  13. FLOVENT [Concomitant]
  14. FERROUS SULFATE TAB [Concomitant]
     Dosage: 300 MG, UNK
  15. CALCITONIN SALMON [Concomitant]
  16. DIAZEPAM [Concomitant]
     Dosage: 5 MG, UNK
  17. SENNOSIDE [Concomitant]
     Dosage: 12 MG, UNK
  18. PANTOPRAZOLE [Concomitant]
     Dosage: 40 MG, OTHER
  19. CALCIUM CARBONATE [Concomitant]
     Dosage: 500 MG, UNK
  20. FORTEO [Suspect]
     Indication: OSTEOPOROSIS
     Dosage: 20 UG, QD
     Route: 058
     Dates: start: 20110803
  21. SYNTHROID [Concomitant]
     Dosage: 0.05 MG, UNK
  22. SPIRIVA [Concomitant]
     Dosage: 18 UG, UNK

REACTIONS (1)
  - HOSPITALISATION [None]
